FAERS Safety Report 17002049 (Version 1)
Quarter: 2019Q4

REPORT INFORMATION
  Report Type: Spontaneous
  Country: AU (occurrence: AU)
  Receive Date: 20191106
  Receipt Date: 20191106
  Transmission Date: 20200122
  Serious: Yes (Hospitalization)
  Sender: FDA-Public Use
  Company Number: NVSC2019AU023439

PATIENT
  Sex: Female

DRUGS (3)
  1. FEMARA [Suspect]
     Active Substance: LETROZOLE
     Indication: BREAST CANCER
     Dosage: UNK
     Route: 065
  2. DENOSUMAB [Suspect]
     Active Substance: DENOSUMAB
     Indication: PRODUCT USED FOR UNKNOWN INDICATION
     Dosage: UNK UNK, QMO
     Route: 065
  3. RIBOCICLIB. [Suspect]
     Active Substance: RIBOCICLIB
     Indication: BREAST CANCER
     Dosage: UNK
     Route: 065

REACTIONS (13)
  - Electrocardiogram abnormal [Unknown]
  - Nausea [Unknown]
  - Muscle spasms [Unknown]
  - Alopecia [Recovered/Resolved]
  - Malaise [Unknown]
  - Weight decreased [Recovered/Resolved]
  - Influenza [Unknown]
  - Ill-defined disorder [Unknown]
  - Rash [Recovered/Resolved]
  - Fall [Unknown]
  - Depression [Unknown]
  - Pain [Unknown]
  - Neutrophil count decreased [Unknown]
